FAERS Safety Report 6405592-9 (Version None)
Quarter: 2009Q4

REPORT INFORMATION
  Report Type: 
  Country: None (occurrence: None)
  Receive Date: 20091019
  Receipt Date: 20091009
  Transmission Date: 20100525
  Serious: Yes (Hospitalization)
  Sender: FDA-Public Use
  Company Number: CN-BRACCO-000109

PATIENT

DRUGS (4)
  1. IOPAMIRO [Suspect]
     Indication: ARTERIOGRAM CORONARY
     Route: 065
  2. IOPAMIRO [Suspect]
     Indication: PERCUTANEOUS CORONARY INTERVENTION
     Route: 065
  3. IOPAMIRO [Suspect]
     Indication: CHEST PAIN
     Route: 065
  4. IOPAMIRO [Suspect]
     Indication: MYOCARDIAL INFARCTION
     Route: 065

REACTIONS (1)
  - NEPHROPATHY TOXIC [None]
